FAERS Safety Report 9714906 (Version 1)
Quarter: 2013Q4

REPORT INFORMATION
  Report Type: Spontaneous
  Country: DE (occurrence: DE)
  Receive Date: 20131126
  Receipt Date: 20131126
  Transmission Date: 20140711
  Serious: Yes (Other)
  Sender: FDA-Public Use
  Company Number: DE-009507513-1311DEU009529

PATIENT
  Age: 53 Year
  Sex: Female
  Weight: 73 kg

DRUGS (2)
  1. ARCOXIA 30 MG FILMTABLETTEN [Suspect]
     Indication: FIBROMYALGIA
     Dosage: UNK
     Route: 048
     Dates: start: 20130723, end: 20131008
  2. AMITRIPTYLINE HYDROCHLORIDE [Suspect]
     Indication: FIBROMYALGIA
     Dosage: 25 UNK, UNK

REACTIONS (3)
  - Circulatory collapse [Recovered/Resolved]
  - Chest discomfort [Recovered/Resolved]
  - Dry mouth [Recovered/Resolved]
